FAERS Safety Report 18048902 (Version 1)
Quarter: 2020Q3

REPORT INFORMATION
  Report Type: Spontaneous
  Country: US (occurrence: US)
  Receive Date: 20200721
  Receipt Date: 20200721
  Transmission Date: 20201103
  Serious: Yes (Death)
  Sender: FDA-Public Use
  Company Number: None

PATIENT
  Age: 55 Year
  Sex: Female
  Weight: 119 kg

DRUGS (1)
  1. REMDESIVIR. [Suspect]
     Active Substance: REMDESIVIR
     Indication: COVID-19
     Route: 041
     Dates: start: 20200717, end: 20200721

REACTIONS (12)
  - Diarrhoea [None]
  - Drug withdrawal syndrome [None]
  - Pulseless electrical activity [None]
  - Blood fibrinogen increased [None]
  - Anxiety [None]
  - Fibrin D dimer increased [None]
  - Serum ferritin increased [None]
  - Nausea [None]
  - Vomiting [None]
  - Respiratory distress [None]
  - COVID-19 [None]
  - Blood lactate dehydrogenase increased [None]

NARRATIVE: CASE EVENT DATE: 20200721
